FAERS Safety Report 8117201-1 (Version None)
Quarter: 2012Q1

REPORT INFORMATION
  Report Type: 
  Country: None (occurrence: None)
  Receive Date: 20120206
  Receipt Date: 20120131
  Transmission Date: 20120608
  Serious: Yes (Life-Threatening)
  Sender: FDA-Public Use
  Company Number: TR-ASTRAZENECA-2012SE06891

PATIENT
  Age: 50 Year
  Sex: Female
  Weight: 55 kg

DRUGS (2)
  1. SYMBICORT [Suspect]
     Indication: ASTHMA
     Dosage: 160/4.5 2X2
     Route: 055
     Dates: start: 20120125, end: 20120126
  2. RAMIPRIL [Concomitant]

REACTIONS (2)
  - FACE OEDEMA [None]
  - LARYNGEAL OEDEMA [None]
